FAERS Safety Report 23062884 (Version 1)
Quarter: 2023Q4

REPORT INFORMATION
  Report Type: Spontaneous
  Country: US (occurrence: None)
  Receive Date: 20231011
  Receipt Date: 20231011
  Transmission Date: 20240109
  Serious: No
  Sender: FDA-Public Use
  Company Number: None

PATIENT
  Age: 30 Year
  Sex: Male
  Weight: 115.21 kg

DRUGS (1)
  1. RIXUBIS [Suspect]
     Active Substance: COAGULATION FACTOR IX RECOMBINANT HUMAN
     Indication: Factor IX deficiency
     Dosage: OTHER QUANTITY : 3004 UNITS;?FREQUENCY : AS NEEDED;?
     Route: 042
     Dates: start: 20230901

REACTIONS (2)
  - Headache [None]
  - Product contamination physical [None]
